FAERS Safety Report 13450215 (Version 1)
Quarter: 2017Q2

REPORT INFORMATION
  Report Type: Report from Study
  Country: GB (occurrence: GB)
  Receive Date: 20170417
  Receipt Date: 20170417
  Transmission Date: 20170830
  Serious: Yes (Hospitalization)
  Sender: FDA-Public Use
  Company Number: GB-AMGEN-GBRNI2017058395

PATIENT
  Age: 12 Year
  Sex: Female
  Weight: 23 kg

DRUGS (3)
  1. METHOTREXATE. [Concomitant]
     Active Substance: METHOTREXATE
     Indication: JUVENILE IDIOPATHIC ARTHRITIS
     Dosage: UNK
     Dates: start: 20101005, end: 20110317
  2. ETANERCEPT [Suspect]
     Active Substance: ETANERCEPT
     Indication: JUVENILE IDIOPATHIC ARTHRITIS
     Dosage: 35 MG, QWK
     Route: 058
     Dates: start: 20091111, end: 20110317
  3. ETANERCEPT [Suspect]
     Active Substance: ETANERCEPT
     Dosage: 25 MG, 2 TIMES/WK
     Route: 058
     Dates: start: 20110513, end: 20110526

REACTIONS (1)
  - Ovarian cyst [Recovered/Resolved]

NARRATIVE: CASE EVENT DATE: 20110523
